FAERS Safety Report 6948381-9 (Version None)
Quarter: 2010Q3

REPORT INFORMATION
  Report Type: 
  Country: None (occurrence: None)
  Receive Date: 20100828
  Receipt Date: 20100105
  Transmission Date: 20110219
  Serious: No
  Sender: FDA-Public Use
  Company Number: US-ABBOTT-09P-163-0585480-00

PATIENT
  Sex: Female
  Weight: 81.72 kg

DRUGS (7)
  1. NIASPAN [Suspect]
     Indication: PRODUCT USED FOR UNKNOWN INDICATION
     Dates: start: 20090601, end: 20091201
  2. NIASPAN [Suspect]
     Dates: start: 20100104
  3. ASPIRIN [Concomitant]
     Indication: FLUSHING
  4. ASPIRIN [Concomitant]
     Indication: PROPHYLAXIS
  5. SYNTHROID [Concomitant]
     Indication: PRODUCT USED FOR UNKNOWN INDICATION
  6. VITAMIN B COMPLEX CAP [Concomitant]
     Indication: PRODUCT USED FOR UNKNOWN INDICATION
  7. CHOLESTEROL SOLUTIONS [Concomitant]
     Indication: PRODUCT USED FOR UNKNOWN INDICATION

REACTIONS (2)
  - FLUSHING [None]
  - INCORRECT DRUG ADMINISTRATION DURATION [None]
